FAERS Safety Report 4451186-4 (Version None)
Quarter: 2004Q3

REPORT INFORMATION
  Report Type: 
  Country: None (occurrence: None)
  Receive Date: 20040916
  Receipt Date: 20040902
  Transmission Date: 20050211
  Serious: Yes (Hospitalization, Disabling, Other)
  Sender: FDA-Public Use
  Company Number: CH-BRISTOL-MYERS SQUIBB COMPANY-12691192

PATIENT
  Age: 37 Year
  Sex: Female

DRUGS (6)
  1. REYATAZ [Suspect]
     Indication: HIV INFECTION
     Route: 048
     Dates: start: 20030101
  2. VIDEX [Interacting]
     Indication: HIV INFECTION
     Route: 048
     Dates: start: 20030101
  3. NORVIR [Interacting]
     Indication: HIV INFECTION
     Route: 048
     Dates: start: 20030101
  4. ZIAGEN [Interacting]
     Indication: HIV INFECTION
     Route: 048
     Dates: start: 20030101
  5. AMITRIPTYLINE HCL [Concomitant]
     Indication: DEPRESSION
     Route: 048
  6. ATROPINE [Concomitant]
     Route: 058

REACTIONS (3)
  - DRUG INTERACTION [None]
  - HAEMOPTYSIS [None]
  - LIPODYSTROPHY ACQUIRED [None]
